FAERS Safety Report 13830917 (Version 2)
Quarter: 2017Q3

REPORT INFORMATION
  Report Type: Spontaneous
  Country: US (occurrence: US)
  Receive Date: 20170803
  Receipt Date: 20170825
  Transmission Date: 20171127
  Serious: No
  Sender: FDA-Public Use
  Company Number: US-ASTRAZENECA-2017SE79050

PATIENT
  Sex: Female

DRUGS (3)
  1. ONE-A-DAY NOS [Concomitant]
     Active Substance: MINERALS\VITAMINS
  2. NEXIUM 24HR [Suspect]
     Active Substance: ESOMEPRAZOLE MAGNESIUM
     Indication: DYSPEPSIA
     Route: 048
     Dates: start: 20170815
  3. NEXIUM 24HR [Suspect]
     Active Substance: ESOMEPRAZOLE MAGNESIUM
     Indication: DYSPEPSIA
     Route: 048

REACTIONS (6)
  - Drug ineffective [Recovered/Resolved]
  - Blood magnesium decreased [Recovered/Resolved]
  - Dizziness [Unknown]
  - Intentional product use issue [Unknown]
  - Hyperhidrosis [Unknown]
  - Headache [Unknown]
